FAERS Safety Report 6175080-6 (Version None)
Quarter: 2009Q2

REPORT INFORMATION
  Report Type: 
  Country: None (occurrence: None)
  Receive Date: 20090430
  Receipt Date: 20090223
  Transmission Date: 20091009
  Serious: No
  Sender: FDA-Public Use
  Company Number: US-ASTRAZENECA-2009UW04916

PATIENT
  Age: 52 Year
  Sex: Female
  Weight: 54.4 kg

DRUGS (1)
  1. NEXIUM [Suspect]
     Dosage: UNKNOWN
     Route: 048

REACTIONS (1)
  - ILL-DEFINED DISORDER [None]
